FAERS Safety Report 14433151 (Version 1)
Quarter: 2018Q1

REPORT INFORMATION
  Report Type: Spontaneous
  Country: TW (occurrence: TW)
  Receive Date: 20180124
  Receipt Date: 20180124
  Transmission Date: 20180509
  Serious: Yes (Life-Threatening, Hospitalization, Other)
  Sender: FDA-Public Use
  Company Number: TW-SA-2018SA016231

PATIENT
  Age: 66 Year
  Sex: Male

DRUGS (5)
  1. PREDNISOLONE. [Suspect]
     Active Substance: PREDNISOLONE
     Indication: ACUTE FEBRILE NEUTROPHILIC DERMATOSIS
     Route: 048
  2. PREDNISOLONE. [Suspect]
     Active Substance: PREDNISOLONE
     Indication: ACUTE FEBRILE NEUTROPHILIC DERMATOSIS
     Route: 048
  3. ISONIAZID. [Suspect]
     Active Substance: ISONIAZID
     Indication: PULMONARY TUBERCULOSIS
     Route: 065
  4. RIFAMPICIN [Suspect]
     Active Substance: RIFAMPIN
     Indication: PULMONARY TUBERCULOSIS
     Route: 065
  5. CEFTAZIDIME. [Concomitant]
     Active Substance: CEFTAZIDIME
     Route: 065

REACTIONS (22)
  - Tuberculosis [Unknown]
  - Hypotension [Unknown]
  - Leukocytosis [Unknown]
  - Diarrhoea [Unknown]
  - Liver abscess [Recovered/Resolved]
  - Hypersensitivity [Unknown]
  - Pleural effusion [Unknown]
  - Lung abscess [Recovered/Resolved]
  - Cough [Unknown]
  - Respiratory rate decreased [Unknown]
  - Abscess bacterial [Recovered/Resolved]
  - Splenic abscess [Recovered/Resolved]
  - Respiratory failure [Unknown]
  - Nocardiosis [Recovered/Resolved]
  - Pyrexia [Unknown]
  - Gastrointestinal haemorrhage [Unknown]
  - Pulmonary tuberculosis [Unknown]
  - Sepsis [Unknown]
  - Vomiting [Unknown]
  - Aeromonas infection [Unknown]
  - Pneumonia [Unknown]
  - Urinary tract infection [Unknown]
